FAERS Safety Report 5079448-0 (Version None)
Quarter: 2006Q3

REPORT INFORMATION
  Report Type: 
  Country: None (occurrence: None)
  Receive Date: 20060814
  Receipt Date: 20060802
  Transmission Date: 20061208
  Serious: Yes (Other)
  Sender: FDA-Public Use
  Company Number: AU-ROCHE-458174

PATIENT
  Age: 54 Year
  Sex: Male

DRUGS (6)
  1. MYCOPHENOLATE MOFETIL [Suspect]
     Indication: DRUG USE FOR UNKNOWN INDICATION
     Route: 065
  2. SIROLIMUS [Suspect]
     Indication: DRUG USE FOR UNKNOWN INDICATION
     Route: 065
     Dates: start: 20060310
  3. PREDNISOLONE [Concomitant]
  4. AMLODIPINE [Concomitant]
  5. PRAVASTATIN SODIUM [Concomitant]
  6. QUINAPRIL HCL [Concomitant]
     Dosage: REPORTED AS QUINAPRIL HYDROCHLORIDE.

REACTIONS (1)
  - PULMONARY EMBOLISM [None]
